FAERS Safety Report 19412143 (Version 1)
Quarter: 2021Q2

REPORT INFORMATION
  Report Type: Spontaneous
  Country: US (occurrence: US)
  Receive Date: 20210614
  Receipt Date: 20210614
  Transmission Date: 20210717
  Serious: No
  Sender: FDA-Public Use
  Company Number: US-SA-2021SA194747

PATIENT
  Age: 71 Year
  Sex: Female

DRUGS (1)
  1. DUPIXENT [Suspect]
     Active Substance: DUPILUMAB
     Indication: ECZEMA
     Dosage: 300 MG, QOW
     Route: 058
     Dates: start: 2017

REACTIONS (8)
  - Scratch [Unknown]
  - Pruritus [Unknown]
  - Skin exfoliation [Recovered/Resolved]
  - Hyperhidrosis [Unknown]
  - Inflammation [Unknown]
  - Condition aggravated [Unknown]
  - Cold sweat [Unknown]
  - Chills [Unknown]

NARRATIVE: CASE EVENT DATE: 20210609
